FAERS Safety Report 20890580 (Version 1)
Quarter: 2022Q2

REPORT INFORMATION
  Report Type: Other
  Country: US (occurrence: None)
  Receive Date: 20220530
  Receipt Date: 20220530
  Transmission Date: 20220721
  Serious: Yes (Death)
  Sender: FDA-Public Use
  Company Number: US-ROCHE-2974268

PATIENT
  Sex: Male

DRUGS (3)
  1. HERCEPTIN [Suspect]
     Active Substance: TRASTUZUMAB
     Indication: Pulmonary tuberculosis
     Dosage: INFUSE 350 MG EVERY 21 DAY(S) FOR 24 CYCLES
     Route: 041
  2. HERCEPTIN [Suspect]
     Active Substance: TRASTUZUMAB
     Indication: Lung neoplasm malignant
  3. HERCEPTIN [Suspect]
     Active Substance: TRASTUZUMAB
     Indication: Lung neoplasm malignant

REACTIONS (2)
  - Death [Fatal]
  - Off label use [Unknown]
